FAERS Safety Report 5761865-4 (Version None)
Quarter: 2008Q2

REPORT INFORMATION
  Report Type: 
  Country: None (occurrence: None)
  Receive Date: 20080606
  Receipt Date: 20080529
  Transmission Date: 20081010
  Serious: Yes (Other)
  Sender: FDA-Public Use
  Company Number: DE-PFIZER INC-2008046448

PATIENT
  Sex: Male

DRUGS (2)
  1. SORTIS [Suspect]
     Indication: PROPHYLAXIS
     Dosage: DAILY DOSE:10MG
     Route: 048
  2. SORTIS [Suspect]
     Dosage: DAILY DOSE:20MG
     Route: 048

REACTIONS (2)
  - MUSCLE SPASMS [None]
  - MYOCARDIAL INFARCTION [None]
